FAERS Safety Report 5813362-5 (Version None)
Quarter: 2008Q3

REPORT INFORMATION
  Report Type: 
  Country: None (occurrence: None)
  Receive Date: 20080716
  Receipt Date: 20080716
  Transmission Date: 20090109
  Serious: Yes (Hospitalization)
  Sender: FDA-Public Use
  Company Number: None

PATIENT
  Age: 77 Year
  Sex: Female

DRUGS (1)
  1. BUPROPRION SR 150 PO BID #60 FILLED ON 8-31-07 [Suspect]
     Dosage: SEE ABOVE

REACTIONS (1)
  - HALLUCINATION, VISUAL [None]
